FAERS Safety Report 9005196 (Version 1)
Quarter: 2013Q1

REPORT INFORMATION
  Report Type: Spontaneous
  Country: US (occurrence: None)
  Receive Date: 20130107
  Receipt Date: 20130107
  Transmission Date: 20140127
  Serious: No
  Sender: FDA-Public Use
  Company Number: None

PATIENT
  Age: 58 Year
  Sex: Female
  Weight: 83.92 kg

DRUGS (1)
  1. VIVELLE DOT [Suspect]
     Indication: MENOPAUSAL SYMPTOMS
     Dosage: 0.05 PATCH 2X/WEEK TRANSDERMAL
     Route: 062
     Dates: start: 20050801, end: 20121231

REACTIONS (3)
  - Application site pruritus [None]
  - Application site erythema [None]
  - Application site rash [None]
